FAERS Safety Report 6329701-5 (Version None)
Quarter: 2009Q3

REPORT INFORMATION
  Report Type: 
  Country: None (occurrence: None)
  Receive Date: 20090826
  Receipt Date: 20090813
  Transmission Date: 20100115
  Serious: Yes (Hospitalization)
  Sender: FDA-Public Use
  Company Number: GB-MYLANLABS-2009S1014526

PATIENT
  Age: 70 Year
  Sex: Male

DRUGS (3)
  1. OMEPRAZOLE [Suspect]
     Indication: DRUG USE FOR UNKNOWN INDICATION
     Route: 048
     Dates: start: 20090530, end: 20090730
  2. DICLOFENAC [Suspect]
     Indication: OSTEOARTHRITIS
     Route: 048
     Dates: start: 20090530, end: 20090730
  3. DICLOFENAC [Suspect]
     Indication: PAIN
     Route: 048
     Dates: start: 20090530, end: 20090730

REACTIONS (1)
  - RENAL FAILURE ACUTE [None]
